FAERS Safety Report 20205545 (Version 2)
Quarter: 2024Q4

REPORT INFORMATION
  Report Type: Spontaneous
  Country: FR (occurrence: FR)
  Receive Date: 20211220
  Receipt Date: 20241011
  Transmission Date: 20250114
  Serious: Yes (Other)
  Sender: NOVARTIS
  Company Number: None

PATIENT
  Age: 4 Year
  Sex: Male

DRUGS (2)
  1. TEGRETOL [Suspect]
     Active Substance: CARBAMAZEPINE
     Indication: Epilepsy
     Dosage: UNK (POSOLOGIE INCONNUE, TRANSPLACENTAL)
     Route: 065
     Dates: start: 20161007, end: 20170709
  2. LAMICTAL [Suspect]
     Active Substance: LAMOTRIGINE
     Indication: Epilepsy
     Dosage: UNK (POSOLOGIE INCONNUE, TRANSPLACENTAL)
     Route: 065
     Dates: start: 20161007, end: 20170709

REACTIONS (1)
  - Speech disorder developmental [Not Recovered/Not Resolved]
